FAERS Safety Report 6644962-0 (Version None)
Quarter: 2010Q1

REPORT INFORMATION
  Report Type: 
  Country: None (occurrence: None)
  Receive Date: 20100322
  Receipt Date: 20100310
  Transmission Date: 20100710
  Serious: Yes (Hospitalization)
  Sender: FDA-Public Use
  Company Number: PHHY2010HU14657

PATIENT
  Sex: Male

DRUGS (1)
  1. VAA489A VAL_AML+TAB [Suspect]
     Indication: HYPERTENSION
     Dosage: UNK
     Route: 048

REACTIONS (2)
  - HAEMATOLOGICAL MALIGNANCY [None]
  - THROMBOSIS [None]
